FAERS Safety Report 13446221 (Version 1)
Quarter: 2017Q2

REPORT INFORMATION
  Report Type: Spontaneous
  Country: US (occurrence: US)
  Receive Date: 20170417
  Receipt Date: 20170417
  Transmission Date: 20170830
  Serious: No
  Sender: FDA-Public Use
  Company Number: PHEH2017US010446

PATIENT
  Sex: Female

DRUGS (2)
  1. IBRANCE [Suspect]
     Active Substance: PALBOCICLIB
     Indication: BREAST CANCER
     Dosage: 125 MG, QD
     Route: 048
     Dates: start: 20161129, end: 20170217
  2. LETROZOLE. [Suspect]
     Active Substance: LETROZOLE
     Indication: BREAST CANCER
     Dosage: UNK
     Route: 065
     Dates: end: 20170217

REACTIONS (12)
  - Thermal burn [Unknown]
  - Anaemia [Unknown]
  - Weight abnormal [Unknown]
  - Hot flush [Unknown]
  - Viral upper respiratory tract infection [Unknown]
  - Constipation [Recovering/Resolving]
  - Peripheral swelling [Unknown]
  - Sneezing [Unknown]
  - Cough [Unknown]
  - Pain [Unknown]
  - Hypoaesthesia [Unknown]
  - Hyperhidrosis [Unknown]
